FAERS Safety Report 4776716-4 (Version None)
Quarter: 2005Q3

REPORT INFORMATION
  Report Type: 
  Country: None (occurrence: None)
  Receive Date: 20050923
  Receipt Date: 20050918
  Transmission Date: 20060218
  Serious: Yes (Other)
  Sender: FDA-Public Use
  Company Number: SE-JNJFOC-20050800466

PATIENT
  Sex: Male

DRUGS (9)
  1. INFLIXIMAB [Suspect]
     Route: 042
  2. INFLIXIMAB [Suspect]
     Indication: RHEUMATOID ARTHRITIS
     Route: 042
  3. METHOTREXATE [Concomitant]
     Indication: RHEUMATOID ARTHRITIS
  4. ACTRAPID [Concomitant]
  5. FOLACIN [Concomitant]
  6. FOLACIN [Concomitant]
  7. DISTALGESIC [Concomitant]
  8. DISTALGESIC [Concomitant]
  9. ASPIRIN [Concomitant]

REACTIONS (1)
  - PULMONARY TUBERCULOSIS [None]
